FAERS Safety Report 4682092-8 (Version None)
Quarter: 2005Q2

REPORT INFORMATION
  Report Type: 
  Country: None (occurrence: None)
  Receive Date: 20050602
  Receipt Date: 20050518
  Transmission Date: 20051028
  Serious: Yes (Hospitalization)
  Sender: FDA-Public Use
  Company Number: S05-ITA-01739-01

PATIENT
  Age: 69 Year
  Sex: Male

DRUGS (6)
  1. ENTACT (ESCITALOPRAM) [Suspect]
     Indication: DEPRESSION
     Dosage: 10 MG QD PO
     Route: 048
     Dates: start: 20050201, end: 20050228
  2. ESOMEPRAZOLE [Concomitant]
  3. COLIMICIN (COLISTIN SULFATE) [Concomitant]
  4. INDOXEN (INDOMETACIN) [Concomitant]
  5. POLASE [Concomitant]
  6. AMINOMAL (AMINOPHYLLINE) [Concomitant]

REACTIONS (2)
  - BRADYARRHYTHMIA [None]
  - ELECTROCARDIOGRAM ABNORMAL [None]
